FAERS Safety Report 6898134-5 (Version None)
Quarter: 2010Q3

REPORT INFORMATION
  Report Type: 
  Country: None (occurrence: None)
  Receive Date: 20100802
  Receipt Date: 20070913
  Transmission Date: 20110219
  Serious: No
  Sender: FDA-Public Use
  Company Number: US-PFIZER INC-2007077767

PATIENT
  Sex: Male
  Weight: 88.6 kg

DRUGS (6)
  1. LYRICA [Suspect]
     Indication: PAIN IN EXTREMITY
     Route: 048
     Dates: start: 20070827
  2. VALSARTAN [Concomitant]
     Route: 048
  3. ZETIA [Concomitant]
     Route: 048
  4. TESTOSTERONE [Concomitant]
     Route: 061
  5. OTHER ANTI-ASTHMATICS, INHALANTS [Concomitant]
     Indication: ASTHMA
     Route: 048
  6. IMITREX [Concomitant]
     Indication: ASTHMA

REACTIONS (1)
  - PARAESTHESIA [None]
